FAERS Safety Report 7803285-4 (Version None)
Quarter: 2011Q4

REPORT INFORMATION
  Report Type: 
  Country: None (occurrence: None)
  Receive Date: 20111005
  Receipt Date: 20110920
  Transmission Date: 20120403
  Serious: Yes (Hospitalization, Other)
  Sender: FDA-Public Use
  Company Number: CIP11001738

PATIENT
  Sex: Female
  Weight: 111.4 kg

DRUGS (41)
  1. BONIVA [Suspect]
  2. HYDROCODONE W/APAP (HYROCODONE, PARACETAMOL) [Concomitant]
  3. TOPROL-XL [Concomitant]
  4. FOLIC ACID [Concomitant]
  5. DROCON-CS (BROMPHENIRAMINE MALEATE, HYDROCODONE BITARTRATE, PSEUDOEPHE [Concomitant]
  6. NEXIUM [Concomitant]
  7. AZATHIOPRINE [Concomitant]
  8. TRIAMTERENE AND HYDROCHLOROTHIAZIDE [Concomitant]
  9. BUPROPION HCL [Concomitant]
  10. RECLAST [Suspect]
     Indication: OSTEOPOROSIS
     Dosage: ONCE ONLY, IV NOS
     Route: 042
     Dates: start: 20100201, end: 20100201
  11. HYDROXYCHLOROQUINE /00072603/ (HYDROXYCHLOROQUINE SULFATE) [Concomitant]
  12. ZITHROMAX [Concomitant]
  13. FLUCONAZOLE [Concomitant]
  14. METACLOPRAMIE (METACLOPRAMIDE HYDROCHLORIDE) [Concomitant]
  15. ADVAIR HFA [Concomitant]
  16. CYCLOBENZAPRINE [Concomitant]
  17. PREDNISONE TAB [Concomitant]
  18. AMBIEN (ZOLPIDENT TARTRATE) [Concomitant]
  19. LEVAQUIN [Concomitant]
  20. MOBIC [Concomitant]
  21. MECLIZINE /00072801/ (MECLOZINE) [Concomitant]
  22. PROMETRIUM /00110701/ (PROGESTERONE) [Concomitant]
  23. GABAPENTIN [Concomitant]
  24. ALPRAZOLAM [Concomitant]
  25. AMOXICILLIN AND CLAVULANATE POTASSIUM (AMOXICILLIN THRIHYDRATE, CLAVUL [Concomitant]
  26. TOPAMAX [Concomitant]
  27. LEXAPRO [Concomitant]
  28. TRIAMCINOLONE [Concomitant]
  29. PROMETHAZINE [Concomitant]
  30. PREVACID [Concomitant]
  31. TIZANIDINE HCL [Concomitant]
  32. FORTICAL /00108001/ (CALCIUM CARBONATE) [Concomitant]
  33. METHOTREXATE [Concomitant]
  34. ACTONEL [Suspect]
     Dosage: 35 MG, ORAL
     Route: 048
     Dates: start: 20040831, end: 20060921
  35. MAXALT /01406501/ (RIZATRIPTAN) [Concomitant]
  36. CIPROFLOXACIN HYDROCHLORIDE [Concomitant]
  37. PRAVACHOL [Concomitant]
  38. RELPAX [Concomitant]
  39. TRIMETHOBENZAMIDE (TRIMETHOBENZAMIDE) [Concomitant]
  40. PROCHLORPERAZINE (PROCHLORPERAINE) [Concomitant]
  41. MEDROXYPROGEST (MEDROXYPROGESTERONE ACETATE) [Concomitant]

REACTIONS (7)
  - FEMUR FRACTURE [None]
  - SYSTEMIC LUPUS ERYTHEMATOSUS [None]
  - STRESS FRACTURE [None]
  - COMMINUTED FRACTURE [None]
  - ARTHRALGIA [None]
  - BURSITIS [None]
  - IATROGENIC INJURY [None]
